FAERS Safety Report 12633422 (Version 1)
Quarter: 2016Q3

REPORT INFORMATION
  Report Type: Spontaneous
  Country: US (occurrence: None)
  Receive Date: 20160808
  Receipt Date: 20160808
  Transmission Date: 20161109
  Serious: Yes (Hospitalization)
  Sender: FDA-Public Use
  Company Number: None

PATIENT
  Age: 60 Year
  Sex: Female
  Weight: 52.16 kg

DRUGS (4)
  1. SYNTHROID [Concomitant]
     Active Substance: LEVOTHYROXINE SODIUM
  2. EFFEXOR [Concomitant]
     Active Substance: VENLAFAXINE HYDROCHLORIDE
  3. SIMVASTIN [Concomitant]
     Active Substance: SIMVASTATIN
  4. AUGMENTIN [Suspect]
     Active Substance: AMOXICILLIN\CLAVULANATE POTASSIUM
     Indication: EAR INFECTION
     Dosage: EVERY 12 HOURS
     Route: 048
     Dates: start: 20160224, end: 20160227

REACTIONS (4)
  - Therapy non-responder [None]
  - Clostridium difficile infection [None]
  - Asthenia [None]
  - Dysstasia [None]

NARRATIVE: CASE EVENT DATE: 20160224
